FAERS Safety Report 5271399-1 (Version None)
Quarter: 2007Q1

REPORT INFORMATION
  Report Type: 
  Country: None (occurrence: None)
  Receive Date: 20070321
  Receipt Date: 20070307
  Transmission Date: 20070707
  Serious: Yes (Hospitalization)
  Sender: FDA-Public Use
  Company Number: US-ELI_LILLY_AND_COMPANY-US200703002618

PATIENT
  Sex: Female

DRUGS (6)
  1. STRATTERA [Suspect]
     Indication: ATTENTION DEFICIT/HYPERACTIVITY DISORDER
     Dosage: 100 MG, UNK
  2. STRATTERA [Suspect]
     Dosage: 60 MG, UNK
     Dates: start: 20070109
  3. LEXAPRO [Concomitant]
     Dosage: 10 MG, 2/D
  4. NEXIUM [Concomitant]
  5. CLARINEX [Concomitant]
  6. HYDROCHLOROTHIAZIDE [Concomitant]

REACTIONS (2)
  - ILEUS [None]
  - OEDEMA [None]
